FAERS Safety Report 8918163 (Version 3)
Quarter: 2012Q4

REPORT INFORMATION
  Report Type: Report from Study
  Country: TR (occurrence: TR)
  Receive Date: 20121120
  Receipt Date: 20121210
  Transmission Date: 20130627
  Serious: Yes (Hospitalization)
  Sender: FDA-Public Use
  Company Number: TR-GILEAD-2012-0064797

PATIENT
  Age: 50 Year
  Sex: Male

DRUGS (2)
  1. TENOFOVIR DISOPROXIL FUMARATE [Suspect]
     Indication: CHRONIC HEPATITIS B
     Dosage: 300 mg, QD
     Route: 048
     Dates: start: 20080602
  2. PLACEBO [Suspect]
     Indication: CHRONIC HEPATITIS B
     Dosage: 1 DF, QD
     Route: 048
     Dates: start: 20080602

REACTIONS (2)
  - Lung infiltration [Not Recovered/Not Resolved]
  - Pleural effusion [Not Recovered/Not Resolved]
